FAERS Safety Report 7982650-9 (Version None)
Quarter: 2011Q4

REPORT INFORMATION
  Report Type: 
  Country: None (occurrence: None)
  Receive Date: 20111215
  Receipt Date: 20111212
  Transmission Date: 20120403
  Serious: Yes (Hospitalization)
  Sender: FDA-Public Use
  Company Number: FR-ROCHE-1021504

PATIENT
  Age: 82 Year
  Sex: Male

DRUGS (2)
  1. INTERFERON ALFA [Concomitant]
  2. MABTHERA [Suspect]
     Indication: LYMPHOMA
     Route: 042
     Dates: start: 20071024

REACTIONS (1)
  - COLON CANCER METASTATIC [None]
